FAERS Safety Report 14928810 (Version 1)
Quarter: 2018Q2

REPORT INFORMATION
  Report Type: Spontaneous
  Country: GB (occurrence: GB)
  Receive Date: 20180523
  Receipt Date: 20180523
  Transmission Date: 20180711
  Serious: Yes (Life-Threatening, Other)
  Sender: FDA-Public Use
  Company Number: GB-PFIZER INC-2018208671

PATIENT
  Age: 53 Year
  Sex: Female
  Weight: 92 kg

DRUGS (8)
  1. FLUCLOXACILLIN [Concomitant]
     Active Substance: FLUCLOXACILLIN
     Dosage: 4 DF, 1X/DAY
     Dates: start: 20180314, end: 20180321
  2. CASSIA SENNA [Concomitant]
     Active Substance: HERBALS\SENNOSIDES
     Dosage: 3 DF 1X/DAY, AT NIGHT
     Dates: start: 20151204, end: 20180207
  3. MST CONTINUS [Concomitant]
     Active Substance: MORPHINE SULFATE
     Dosage: 1 DF 1X/DAY, AT NIGHT
     Dates: start: 20180208, end: 20180310
  4. ZOMORPH [Concomitant]
     Active Substance: MORPHINE SULFATE
     Dosage: 2 DF 1X/DAY, DOSE REDUCTION PLAN
     Dates: start: 20161229, end: 20180207
  5. FLUOXETINE [Concomitant]
     Active Substance: FLUOXETINE HYDROCHLORIDE
     Dosage: 2 DF, 1X/DAY
     Dates: start: 20100525, end: 20180110
  6. GABAPENTIN. [Suspect]
     Active Substance: GABAPENTIN
     Dosage: UNK
     Dates: start: 20180201
  7. ADCAL /00056901/ [Concomitant]
     Active Substance: CARBAZOCHROME
     Dosage: 4 DF, 1X/DAY
     Dates: start: 20160915, end: 20180207
  8. COCODAMOL [Concomitant]
     Active Substance: ACETAMINOPHEN\CODEINE PHOSPHATE
     Dosage: 1 OR 2 TAKEN 4 TIMES A DAY
     Dates: start: 20171123, end: 20180110

REACTIONS (1)
  - Anaphylactic shock [Unknown]

NARRATIVE: CASE EVENT DATE: 20180409
